FAERS Safety Report 18101523 (Version 1)
Quarter: 2020Q3

REPORT INFORMATION
  Report Type: Spontaneous
  Country: US (occurrence: US)
  Receive Date: 20200801
  Receipt Date: 20200801
  Transmission Date: 20201103
  Serious: Yes (Other)
  Sender: FDA-Public Use
  Company Number: US-009507513-2007USA010353

PATIENT
  Sex: Male

DRUGS (2)
  1. SUTENT [Suspect]
     Active Substance: SUNITINIB MALATE
     Dosage: 50 MILLIGRAM, QD, BY MOUTH
     Dates: start: 20200305
  2. COZAAR [Suspect]
     Active Substance: LOSARTAN POTASSIUM
     Dosage: UNK
     Route: 048
     Dates: start: 202006, end: 20200716

REACTIONS (13)
  - Hypertension [Recovering/Resolving]
  - Muscle atrophy [Recovering/Resolving]
  - Malaise [Recovering/Resolving]
  - Haemoglobin decreased [Recovering/Resolving]
  - Headache [Recovering/Resolving]
  - Fatigue [Recovering/Resolving]
  - Dyspnoea exertional [Recovering/Resolving]
  - Asthenia [Recovering/Resolving]
  - Arrhythmia [Recovering/Resolving]
  - Night sweats [Recovering/Resolving]
  - Blood iron decreased [Recovering/Resolving]
  - Insomnia [Recovering/Resolving]
  - Nausea [Recovering/Resolving]

NARRATIVE: CASE EVENT DATE: 2020
